FAERS Safety Report 22372964 (Version 1)
Quarter: 2023Q2

REPORT INFORMATION
  Report Type: Spontaneous
  Country: US (occurrence: US)
  Receive Date: 20230526
  Receipt Date: 20230526
  Transmission Date: 20230721
  Serious: Yes (Hospitalization, Other)
  Sender: FDA-Public Use
  Company Number: US-FreseniusKabi-FK202307155

PATIENT
  Age: 76 Year
  Sex: Female

DRUGS (3)
  1. BUPIVACAINE [Suspect]
     Active Substance: BUPIVACAINE
     Indication: Pain
     Dosage: 600 MG; INTRATHECAL, PUMP REFILL
     Route: 058
  2. CLONIDINE [Suspect]
     Active Substance: CLONIDINE
     Indication: Pain
     Dosage: 32 MG; INTRATHECAL, PUMP REFILL
     Route: 058
  3. HYDROMORPHONE [Suspect]
     Active Substance: HYDROMORPHONE
     Indication: Pain
     Dosage: 1200 MG OF HYDROMORPHONE IN 40 ML; INTRATHECAL, PUMP REFILL
     Route: 058

REACTIONS (4)
  - Incorrect route of product administration [Unknown]
  - Unresponsive to stimuli [Unknown]
  - Bradycardia [Unknown]
  - Overdose [Unknown]
